FAERS Safety Report 14011798 (Version 1)
Quarter: 2017Q3

REPORT INFORMATION
  Report Type: Spontaneous
  Country: BA (occurrence: BA)
  Receive Date: 20170926
  Receipt Date: 20170926
  Transmission Date: 20171128
  Serious: Yes (Other)
  Sender: FDA-Public Use
  Company Number: BA-GEHC-2017CSU002950

PATIENT

DRUGS (1)
  1. OMNISCAN [Suspect]
     Active Substance: GADODIAMIDE
     Indication: UTERINE DISORDER
     Dosage: 8 ML, SINGLE
     Route: 042
     Dates: start: 20170915, end: 20170915

REACTIONS (1)
  - Depressed level of consciousness [Unknown]
